FAERS Safety Report 6111193-2 (Version None)
Quarter: 2009Q1

REPORT INFORMATION
  Report Type: 
  Country: None (occurrence: None)
  Receive Date: 20090309
  Receipt Date: 20090224
  Transmission Date: 20090719
  Serious: Yes (Other)
  Sender: FDA-Public Use
  Company Number: GXKR2009GB02369

PATIENT
  Age: 49 Year
  Sex: Female
  Weight: 70 kg

DRUGS (4)
  1. TRAMADOL HCL [Suspect]
     Indication: BACK PAIN
     Dosage: QID, ORAL
     Route: 048
     Dates: start: 20081227
  2. QVAR [Concomitant]
  3. SALBUTAMOL (SALBUTAMOL) [Concomitant]
  4. TRIMETHOPRIM [Concomitant]

REACTIONS (3)
  - COUGH [None]
  - DRUG WITHDRAWAL SYNDROME [None]
  - WHEEZING [None]
